FAERS Safety Report 4320648-2 (Version None)
Quarter: 2004Q1

REPORT INFORMATION
  Report Type: 
  Country: None (occurrence: None)
  Receive Date: 20040315
  Receipt Date: 20030416
  Transmission Date: 20041129
  Serious: Yes (Hospitalization)
  Sender: FDA-Public Use
  Company Number: USA030228339

PATIENT
  Age: 22 Year
  Sex: Female
  Weight: 92 kg

DRUGS (2)
  1. GEMZAR [Suspect]
     Indication: HODGKIN'S DISEASE RECURRENT
     Dosage: 1000 MG/M2/OTHER
     Route: 050
     Dates: start: 20030103
  2. VINORELBINE TARTRATE [Concomitant]

REACTIONS (1)
  - DYSPNOEA EXERTIONAL [None]
